FAERS Safety Report 19748134 (Version 1)
Quarter: 2021Q3

REPORT INFORMATION
  Report Type: Spontaneous
  Country: US (occurrence: US)
  Receive Date: 20210824
  Receipt Date: 20210824
  Transmission Date: 20211014
  Serious: Yes (Hospitalization)
  Sender: FDA-Public Use
  Company Number: None

PATIENT
  Sex: Female

DRUGS (1)
  1. AMBRISENTAN 5MG CIPLA USA [Suspect]
     Active Substance: AMBRISENTAN
     Indication: PULMONARY ARTERIAL HYPERTENSION
     Route: 048
     Dates: start: 20190524

REACTIONS (8)
  - Heart rate increased [None]
  - Dyspnoea [None]
  - Pharyngeal swelling [None]
  - Urticaria [None]
  - Vertigo [None]
  - Throat irritation [None]
  - Swollen tongue [None]
  - Drug hypersensitivity [None]
